FAERS Safety Report 8072784-5 (Version None)
Quarter: 2011Q4

REPORT INFORMATION
  Report Type: 
  Country: None (occurrence: None)
  Receive Date: 20111221
  Receipt Date: 20110617
  Transmission Date: 20120403
  Serious: Yes (Hospitalization)
  Sender: FDA-Public Use
  Company Number: PHHY2010US54717

PATIENT
  Age: 80 Year
  Sex: Male
  Weight: 73.9 kg

DRUGS (21)
  1. ASPIRIN [Concomitant]
  2. PHENERGAN HCL [Concomitant]
  3. PROCRIT [Concomitant]
  4. AZOPT [Concomitant]
  5. KLOR-CON [Concomitant]
  6. EXJADE [Suspect]
     Indication: IRON OVERLOAD
     Dosage: 1500 MG, QD, ORAL
     Route: 048
     Dates: start: 20100507, end: 20100601
  7. EXJADE [Suspect]
     Indication: NEOPLASM
     Dosage: 1500 MG, QD, ORAL
     Route: 048
     Dates: start: 20100507, end: 20100601
  8. FLAXSEED OIL (LINUM USITATISSIMUM SEED OIL) [Concomitant]
  9. LOPURIN (ALLOPURINOL) [Concomitant]
  10. GLUCOPHAGE [Concomitant]
  11. REQUIP [Concomitant]
  12. SINEMET [Concomitant]
  13. LUMIGAN [Concomitant]
  14. CALMOSEPTINE (CALAMINE, MENTHOL, ZINC OXIDE) [Concomitant]
  15. PRILOSEC [Concomitant]
  16. LASIX [Concomitant]
  17. VIDAZA [Concomitant]
  18. PROVENTIL [Concomitant]
  19. ACTOS (PIOGLITAZONE, PIOGLITAZONE HYDROCHLORIDE) [Concomitant]
  20. NOVOLIN R [Concomitant]
  21. BACITRACIN [Concomitant]

REACTIONS (4)
  - RENAL FAILURE [None]
  - BLOOD CREATININE INCREASED [None]
  - BLOOD CHLORIDE INCREASED [None]
  - OEDEMA PERIPHERAL [None]
